FAERS Safety Report 6383270-2 (Version None)
Quarter: 2009Q3

REPORT INFORMATION
  Report Type: 
  Country: None (occurrence: None)
  Receive Date: 20090929
  Receipt Date: 20090918
  Transmission Date: 20100115
  Serious: Yes (Death, Hospitalization)
  Sender: FDA-Public Use
  Company Number: 440020M09USA

PATIENT
  Sex: Male

DRUGS (1)
  1. SEROSTIM [Suspect]
     Indication: CACHEXIA
     Dosage: NOT REPORTED
     Dates: end: 20090601

REACTIONS (2)
  - CELLULITIS [None]
  - SEPTIC SHOCK [None]
